FAERS Safety Report 7630811-0 (Version None)
Quarter: 2011Q3

REPORT INFORMATION
  Report Type: 
  Country: None (occurrence: None)
  Receive Date: 20110723
  Receipt Date: 20110715
  Transmission Date: 20111222
  Serious: Yes (Hospitalization, Other)
  Sender: FDA-Public Use
  Company Number: BE-ABBOTT-11P-013-0712355-00

PATIENT
  Sex: Female

DRUGS (12)
  1. BISOPROLOL [Concomitant]
     Indication: HYPERTENSION
     Dates: start: 20070101
  2. ZOLEDRONOC ACID [Concomitant]
     Indication: OSTEOPOROSIS
     Dates: start: 20060101
  3. HUMIRA [Suspect]
     Indication: RHEUMATOID ARTHRITIS
     Dates: start: 19980701, end: 20110101
  4. MEDROL [Concomitant]
     Indication: RHEUMATOID ARTHRITIS
     Dates: start: 20100101
  5. OMEPRAZOLE [Concomitant]
  6. OMEPRAZOLE [Concomitant]
     Indication: ABDOMINAL PAIN UPPER
     Dates: start: 20060101
  7. ALDACTAZINE [Concomitant]
     Indication: HYPERTENSION
     Dates: start: 20050101
  8. LERCANIDIPINE [Concomitant]
     Indication: HYPERTENSION
     Dates: start: 20100101
  9. CALCIUM CARBONATE [Concomitant]
     Indication: OSTEOPOROSIS
     Dates: start: 20060101
  10. D-CURE [Concomitant]
     Indication: OSTEOPOROSIS
     Dates: start: 20060101
  11. HUMIRA [Suspect]
     Dates: start: 20110622
  12. ALPRAZOLAM [Concomitant]
     Indication: ANXIETY
     Dates: start: 20060101

REACTIONS (22)
  - INFLAMMATION [None]
  - HYPOPHAGIA [None]
  - VERTIGO [None]
  - ILL-DEFINED DISORDER [None]
  - VOMITING [None]
  - DECREASED APPETITE [None]
  - CHROMATURIA [None]
  - NAUSEA [None]
  - ABDOMINAL DISCOMFORT [None]
  - HYPOKALAEMIA [None]
  - PERIPHLEBITIS [None]
  - MEDICAL DEVICE COMPLICATION [None]
  - NORMOCHROMIC NORMOCYTIC ANAEMIA [None]
  - GENERAL PHYSICAL HEALTH DETERIORATION [None]
  - DEHYDRATION [None]
  - MALAISE [None]
  - RENAL FAILURE ACUTE [None]
  - HYPOMAGNESAEMIA [None]
  - THROMBOPHLEBITIS [None]
  - STAPHYLOCOCCAL INFECTION [None]
  - PYREXIA [None]
  - ASTHENIA [None]
